FAERS Safety Report 17537711 (Version 1)
Quarter: 2020Q1

REPORT INFORMATION
  Report Type: Spontaneous
  Country: CA (occurrence: CA)
  Receive Date: 20200313
  Receipt Date: 20200313
  Transmission Date: 20200409
  Serious: Yes (Other)
  Sender: FDA-Public Use
  Company Number: CA-PFIZER INC-2020109816

PATIENT
  Age: 35 Year
  Sex: Female

DRUGS (19)
  1. ENBREL [Suspect]
     Active Substance: ETANERCEPT
     Dosage: UNK
     Route: 065
  2. TOCTINO [Concomitant]
     Active Substance: ALITRETINOIN
     Dosage: 10 MILLIGRAM, TID
  3. DEPO-MEDROL [Concomitant]
     Active Substance: METHYLPREDNISOLONE ACETATE
     Dosage: 40 MILLIGRAM (SUSPENDION INTRA-ARTICULAR)
     Route: 014
  4. DOXEPIN HYDROCHLORIDE. [Concomitant]
     Active Substance: DOXEPIN HYDROCHLORIDE
     Dosage: 150 MILLIGRAM, QD
  5. LIPITOR [Concomitant]
     Active Substance: ATORVASTATIN CALCIUM
     Dosage: 20 MILLIGRAM, QD
  6. REACTINE [CETIRIZINE HYDROCHLORIDE] [Concomitant]
     Active Substance: CETIRIZINE HYDROCHLORIDE
     Dosage: 20 MILLIGRAM, QD
  7. ARAVA [Suspect]
     Active Substance: LEFLUNOMIDE
     Dosage: UNK
     Route: 065
  8. HUMIRA [Suspect]
     Active Substance: ADALIMUMAB
     Dosage: UNK
     Route: 058
  9. ERGOCALCIFEROL. [Concomitant]
     Active Substance: ERGOCALCIFEROL
     Dosage: 50000 INTERNATIONAL UNIT
  10. SINGULAIR [Concomitant]
     Active Substance: MONTELUKAST SODIUM
     Dosage: 10 MILLIGRAM
  11. METHOTREXATE. [Suspect]
     Active Substance: METHOTREXATE
     Dosage: UNK
     Route: 065
  12. ESOMEPRAZOLE MAGNESIUM TRIHYDRATE [Concomitant]
     Active Substance: ESOMEPRAZOLE MAGNESIUM
     Dosage: 40 MILLIGRAM
  13. OXYCODONE HYDROCHLORIDE. [Concomitant]
     Active Substance: OXYCODONE HYDROCHLORIDE
     Dosage: UNK (4 EVERY ONE DAY)
     Route: 065
  14. SYNTHROID [Concomitant]
     Active Substance: LEVOTHYROXINE SODIUM
     Dosage: 25 MILLIGRAM, BID
  15. BLEXTEN [Concomitant]
     Active Substance: BILASTINE
     Dosage: 20 MILLIGRAM, QD
     Route: 065
  16. HYDROCHLOROTHIAZIDE. [Concomitant]
     Active Substance: HYDROCHLOROTHIAZIDE
     Dosage: 125 MILLIGRAM
  17. LYRICA [Concomitant]
     Active Substance: PREGABALIN
     Dosage: 75 MILLIGRAM, BID
  18. OXYNEO [Concomitant]
     Active Substance: OXYCODONE
     Dosage: 20 MILLIGRAM, BID
  19. ZYLOPRIM [Concomitant]
     Active Substance: ALLOPURINOL
     Dosage: 100 MILLIGRAM

REACTIONS (45)
  - Dyshidrotic eczema [Unknown]
  - Lymphadenopathy mediastinal [Unknown]
  - Mandibular mass [Unknown]
  - Osteoporosis [Unknown]
  - Synovitis [Unknown]
  - Vomiting [Unknown]
  - Peripheral swelling [Unknown]
  - Urinary tract infection [Unknown]
  - Drug ineffective [Unknown]
  - C-reactive protein abnormal [Unknown]
  - Dry mouth [Unknown]
  - Lipoma [Unknown]
  - Musculoskeletal stiffness [Unknown]
  - Osteosclerosis [Unknown]
  - Swelling [Unknown]
  - Lymphadenopathy [Unknown]
  - Rectal haemorrhage [Unknown]
  - Skin erosion [Unknown]
  - White blood cell count decreased [Unknown]
  - Allergic oedema [Unknown]
  - Arthritis [Unknown]
  - Blood creatinine abnormal [Unknown]
  - Diverticulum oesophageal [Unknown]
  - Drug intolerance [Unknown]
  - Dysphagia [Unknown]
  - Hypertension [Unknown]
  - Musculoskeletal pain [Unknown]
  - Rash [Unknown]
  - Therapeutic product effect incomplete [Unknown]
  - Arthralgia [Unknown]
  - Asthma [Unknown]
  - Pain in extremity [Unknown]
  - Sarcoidosis [Unknown]
  - Eczema [Unknown]
  - Joint effusion [Unknown]
  - Tenderness [Unknown]
  - Cough [Unknown]
  - Diarrhoea [Unknown]
  - Neck mass [Unknown]
  - Constipation [Unknown]
  - Drug hypersensitivity [Unknown]
  - Headache [Unknown]
  - Lymphoma [Unknown]
  - Migraine [Unknown]
  - Rotator cuff syndrome [Unknown]
